FAERS Safety Report 4781774-7 (Version None)
Quarter: 2005Q3

REPORT INFORMATION
  Report Type: 
  Country: None (occurrence: None)
  Receive Date: 20050927
  Receipt Date: 20050916
  Transmission Date: 20060218
  Serious: Yes (Other)
  Sender: FDA-Public Use
  Company Number: 200511955BWH

PATIENT
  Sex: Female

DRUGS (1)
  1. CIPRO XR [Suspect]

REACTIONS (1)
  - RECTAL HAEMORRHAGE [None]
